FAERS Safety Report 17418640 (Version 1)
Quarter: 2020Q1

REPORT INFORMATION
  Report Type: Spontaneous
  Country: US (occurrence: US)
  Receive Date: 20200131
  Receipt Date: 20200131
  Transmission Date: 20200409
  Serious: Yes (Hospitalization)
  Sender: FDA-Public Use
  Company Number: None

PATIENT
  Age: 18 Year
  Sex: Male

DRUGS (2)
  1. SILDENAFIL 20MG [Suspect]
     Active Substance: SILDENAFIL
     Indication: CARDIAC FAILURE
     Dosage: ?          OTHER DOSE:1 TAB;?
     Route: 048
     Dates: start: 20180117
  2. SILDENAFIL 20MG [Suspect]
     Active Substance: SILDENAFIL
     Indication: CONGESTIVE CARDIOMYOPATHY
     Dosage: ?          OTHER DOSE:1 TAB;?
     Route: 048
     Dates: start: 20180117

REACTIONS (1)
  - Heart transplant [None]

NARRATIVE: CASE EVENT DATE: 20191222
